FAERS Safety Report 12162087 (Version 1)
Quarter: 2016Q1

REPORT INFORMATION
  Report Type: Spontaneous
  Country: US (occurrence: None)
  Receive Date: 20160308
  Receipt Date: 20160308
  Transmission Date: 20160526
  Serious: Yes (Hospitalization)
  Sender: FDA-Public Use
  Company Number: None

PATIENT
  Age: 80 Year
  Sex: Female
  Weight: 64 kg

DRUGS (16)
  1. COLACE [Concomitant]
     Active Substance: DOCUSATE SODIUM
  2. TUSSIONEX PENNKINETIC [Suspect]
     Active Substance: CHLORPHENIRAMINE\HYDROCODONE
     Indication: PNEUMONIA
     Route: 048
  3. MONODOX [Concomitant]
     Active Substance: DOXYCYCLINE
  4. MUCINEX [Concomitant]
     Active Substance: GUAIFENESIN
  5. KCL [Concomitant]
     Active Substance: POTASSIUM CHLORIDE
  6. ALBUTEROL. [Concomitant]
     Active Substance: ALBUTEROL
  7. ATROPINE. [Concomitant]
     Active Substance: ATROPINE
  8. NEXIUM [Concomitant]
     Active Substance: ESOMEPRAZOLE MAGNESIUM
  9. ULTRAM [Suspect]
     Active Substance: TRAMADOL HYDROCHLORIDE
  10. KLONOPIN [Suspect]
     Active Substance: CLONAZEPAM
     Indication: ANXIETY
     Dosage: 0.5 MG, QPM, PRN, PO
     Route: 048
  11. APAP [Concomitant]
     Active Substance: ACETAMINOPHEN
  12. ECOTRIN [Concomitant]
     Active Substance: ASPIRIN
  13. VITD3 [Concomitant]
  14. CARBIZEM SR [Concomitant]
  15. PATADAY [Concomitant]
     Active Substance: OLOPATADINE HYDROCHLORIDE
  16. DETROL LA [Concomitant]
     Active Substance: TOLTERODINE TARTRATE

REACTIONS (6)
  - Incoherent [None]
  - Death of relative [None]
  - Depressed level of consciousness [None]
  - Speech disorder [None]
  - Confusional state [None]
  - Somnolence [None]

NARRATIVE: CASE EVENT DATE: 20150604
